FAERS Safety Report 9206617 (Version 1)
Quarter: 2013Q1

REPORT INFORMATION
  Report Type: Spontaneous
  Country: US (occurrence: None)
  Receive Date: 20120709
  Receipt Date: 20120709
  Transmission Date: 20140127
  Serious: Yes (Other)
  Sender: FDA-Public Use
  Company Number: PHHY2011US45219

PATIENT
  Age: 76 Year
  Sex: Male

DRUGS (1)
  1. GLEEVEC (IMATINIB) [Suspect]
     Indication: CHRONIC MYELOID LEUKAEMIA
     Route: 048
     Dates: start: 20101213

REACTIONS (10)
  - Chromosome analysis abnormal [None]
  - Discomfort [None]
  - Therapeutic response unexpected [None]
  - Blood pressure increased [None]
  - Periorbital oedema [None]
  - Diarrhoea [None]
  - Muscle spasms [None]
  - Rash [None]
  - Blood potassium decreased [None]
  - Protein total decreased [None]
